FAERS Safety Report 25553878 (Version 1)
Quarter: 2025Q3

REPORT INFORMATION
  Report Type: Spontaneous
  Country: US (occurrence: US)
  Receive Date: 20250715
  Receipt Date: 20250715
  Transmission Date: 20251021
  Serious: Yes (Other)
  Sender: COLGATE
  Company Number: US-ELTAMD-20250701301

PATIENT

DRUGS (1)
  1. ELTAMD UV DAILY TINTED SPF40 [Suspect]
     Active Substance: OCTINOXATE\ZINC OXIDE
     Dates: start: 2025, end: 202506

REACTIONS (4)
  - Eye irritation [Not Recovered/Not Resolved]
  - Accidental exposure to product [Unknown]
  - Eye pain [Not Recovered/Not Resolved]
  - Chemical burns of eye [Not Recovered/Not Resolved]

NARRATIVE: CASE EVENT DATE: 20250623
